FAERS Safety Report 21256569 (Version 1)
Quarter: 2022Q3

REPORT INFORMATION
  Report Type: Spontaneous
  Country: CA (occurrence: CA)
  Receive Date: 20220826
  Receipt Date: 20220826
  Transmission Date: 20221027
  Serious: Yes (Disabling, Other)
  Sender: FDA-Public Use
  Company Number: CA-BAXTER-2022BAX017971

PATIENT
  Age: 13 Year
  Sex: Female

DRUGS (27)
  1. METRONIDAZOLE [Suspect]
     Active Substance: METRONIDAZOLE
     Indication: Meningitis
     Dosage: DOSAGE FORM: NOT SPECIFIED, 500 MG, ONCE EVERY 6 HOURS FOR A DURATION OF 35 DAYS
     Route: 042
  2. METRONIDAZOLE [Suspect]
     Active Substance: METRONIDAZOLE
     Dosage: DOSAGE FORM: LIQUID INTRAVENOUS, STRENGTH: 5MG/ML INJECTION, 500 MG, ONCE EVERY 6 HOURS FOR A DURATI
     Route: 042
  3. CEFTRIAXONE [Suspect]
     Active Substance: CEFTRIAXONE
     Indication: Meningitis
     Dosage: DOSAGE FORM: POWDER FOR SOLUTION INTRAMUSCULAR, 2 GM, ONCE EVERY 12 HOURS FOR A DURATION OF 40 DAYS
     Route: 065
  4. ACETAMINOPHEN [Concomitant]
     Active Substance: ACETAMINOPHEN
     Dosage: DOSAGE FORM: NOT SPECIFIED
     Route: 065
  5. AMLODIPINE [Concomitant]
     Active Substance: AMLODIPINE BESYLATE
     Dosage: DOSAGE FORM: NOT SPECIFIED
     Route: 065
  6. CLONIDINE [Concomitant]
     Active Substance: CLONIDINE
     Dosage: DOSAGE FORM: NOT SPECIFIED
     Route: 065
  7. DEXMEDETOMIDINE [Concomitant]
     Active Substance: DEXMEDETOMIDINE
     Dosage: DOSAGE FORM: NOT SPECIFIED
  8. DILAUDID [Concomitant]
     Active Substance: HYDROMORPHONE HYDROCHLORIDE
     Dosage: DOSAGE FORM: NOT SPECIFIED
  9. FENTANYL [Concomitant]
     Active Substance: FENTANYL
     Dosage: DOSAGE FORM: NOT SPECIFIED
     Route: 065
  10. FLUCONAZOLE [Concomitant]
     Active Substance: FLUCONAZOLE
     Dosage: DOSAGE FORM: NOT SPECIFIED
     Route: 065
  11. FUROSEMIDE [Concomitant]
     Active Substance: FUROSEMIDE
     Dosage: DOSAGE FORM: NOT SPECIFIED
     Route: 065
  12. HUMULIN R [Concomitant]
     Active Substance: INSULIN HUMAN
     Dosage: DOSAGE FORM: SOLUTION INTRAMUSCULAR
  13. IBUPROFEN [Concomitant]
     Active Substance: IBUPROFEN
     Dosage: DOSAGE FORM: NOT SPECIFIED
     Route: 065
  14. LABETALOL [Concomitant]
     Active Substance: LABETALOL\LABETALOL HYDROCHLORIDE
     Dosage: DOSAGE FORM: NOT SPECIFIED
     Route: 065
  15. LACTOBACILLUS REUTERI [Concomitant]
     Active Substance: LACTOBACILLUS REUTERI
     Dosage: DOSAGE FORM: NOT SPECIFIED
     Route: 065
  16. LEVETIRACETAM [Concomitant]
     Active Substance: LEVETIRACETAM
     Dosage: DOSAGE FORM: NOT SPECIFIED
     Route: 065
  17. LORAZEPAM [Concomitant]
     Active Substance: LORAZEPAM
     Dosage: DOSAGE FORM: NOT SPECIFIED
     Route: 065
  18. MELATONIN [Concomitant]
     Active Substance: MELATONIN
     Dosage: DOSAGE FORM: NOT SPECIFIED
     Route: 065
  19. MIDAZOLAM [Concomitant]
     Active Substance: MIDAZOLAM
     Route: 065
  20. MOMETASONE FUROATE [Concomitant]
     Active Substance: MOMETASONE FUROATE
     Dosage: DOSAGE FORM: NOT SPECIFIED
     Route: 065
  21. ONDANSETRON [Concomitant]
     Active Substance: ONDANSETRON
     Dosage: DOSAGE FORM: NOT SPECIFIED
     Route: 065
  22. PROPOFOL [Concomitant]
     Active Substance: PROPOFOL
     Dosage: DOSAGE FORM: NOT SPECIFIED
     Route: 065
  23. ROCURONIUM [Concomitant]
     Active Substance: ROCURONIUM BROMIDE
     Dosage: DOSAGE FORM: NOT SPECIFIED
     Route: 065
  24. SODIUM NITROPRUSSIDE [Concomitant]
     Active Substance: SODIUM NITROPRUSSIDE
     Dosage: DOSAGE FORM: POWDER FOR SOLUTION INTRAVENOUS
  25. TINZAPARIN [Concomitant]
     Active Substance: TINZAPARIN
     Route: 065
  26. VANCOMYCIN [Concomitant]
     Active Substance: VANCOMYCIN
     Dosage: DOSAGE FORM: NOT SPECIFIED
     Route: 065
  27. VITAMIN D [Concomitant]
     Active Substance: VITAMIN D NOS
     Dosage: DOSAGE FORM: NOT SPECIFIED
     Route: 065

REACTIONS (2)
  - Nephrolithiasis [Unknown]
  - Neuropathy peripheral [Unknown]
